FAERS Safety Report 4825852-2 (Version None)
Quarter: 2005Q4

REPORT INFORMATION
  Report Type: 
  Country: None (occurrence: None)
  Receive Date: 20051111
  Receipt Date: 20051107
  Transmission Date: 20060501
  Serious: Yes (Death)
  Sender: FDA-Public Use
  Company Number: PHBS2005AR16399

PATIENT
  Age: 82 Year
  Sex: Female

DRUGS (1)
  1. ZELMAC [Suspect]
     Dosage: 6 MG, UNK

REACTIONS (1)
  - PANCREATIC CARCINOMA [None]
